FAERS Safety Report 11508846 (Version 1)
Quarter: 2015Q3

REPORT INFORMATION
  Report Type: Spontaneous
  Country: US (occurrence: US)
  Receive Date: 20150903
  Receipt Date: 20150903
  Transmission Date: 20151125
  Serious: No
  Sender: FDA-Public Use
  Company Number: US-ELI_LILLY_AND_COMPANY-US201003002982

PATIENT
  Sex: Female

DRUGS (9)
  1. LANTUS [Concomitant]
     Active Substance: INSULIN GLARGINE
     Dosage: 10 U, EACH EVENING
  2. HUMALOG [Suspect]
     Active Substance: INSULIN LISPRO
     Dosage: 4 U, 3/D
     Dates: start: 20100118
  3. HUMALOG [Suspect]
     Active Substance: INSULIN LISPRO
     Dosage: UNK, AS NEEDED
     Dates: start: 20100118
  4. METFORMIN [Concomitant]
     Active Substance: METFORMIN HYDROCHLORIDE
  5. GLYBURIDE. [Concomitant]
     Active Substance: GLYBURIDE
  6. HUMALOG [Suspect]
     Active Substance: INSULIN LISPRO
     Dosage: 4 U, 3/D
     Dates: start: 20100118
  7. HUMALOG [Suspect]
     Active Substance: INSULIN LISPRO
     Dosage: UNK, AS NEEDED
     Dates: start: 20100118
  8. HUMALOG [Suspect]
     Active Substance: INSULIN LISPRO
     Dosage: UNK, AS NEEDED
     Dates: start: 20100118
  9. HUMALOG [Suspect]
     Active Substance: INSULIN LISPRO
     Dosage: 4 U, 3/D
     Dates: start: 20100118

REACTIONS (2)
  - Poor quality drug administered [Unknown]
  - Product packaging quantity issue [Unknown]

NARRATIVE: CASE EVENT DATE: 2010
